FAERS Safety Report 5651929-8 (Version None)
Quarter: 2008Q1

REPORT INFORMATION
  Report Type: 
  Country: None (occurrence: None)
  Receive Date: 20080305
  Receipt Date: 20080222
  Transmission Date: 20080703
  Serious: Yes (Other)
  Sender: FDA-Public Use
  Company Number: US-PFIZER INC-2007056621

PATIENT
  Sex: Female

DRUGS (1)
  1. CHANTIX [Suspect]
     Indication: SMOKING CESSATION THERAPY
     Route: 048
     Dates: start: 20070614, end: 20070622

REACTIONS (15)
  - ARTHRALGIA [None]
  - BASEDOW'S DISEASE [None]
  - BLOOD THYROID STIMULATING HORMONE DECREASED [None]
  - BLOOD THYROID STIMULATING HORMONE INCREASED [None]
  - BURNING SENSATION [None]
  - EUPHORIC MOOD [None]
  - FATIGUE [None]
  - FIBROMYALGIA [None]
  - HEPATIC ENZYME INCREASED [None]
  - MEMORY IMPAIRMENT [None]
  - MYALGIA [None]
  - PAIN [None]
  - RESTLESSNESS [None]
  - SENSORY DISTURBANCE [None]
  - WEIGHT INCREASED [None]
